FAERS Safety Report 6397361-3 (Version None)
Quarter: 2009Q4

REPORT INFORMATION
  Report Type: 
  Country: None (occurrence: None)
  Receive Date: 20091012
  Receipt Date: 20090929
  Transmission Date: 20100525
  Serious: Yes (Other)
  Sender: FDA-Public Use
  Company Number: PHEH2009US12414

PATIENT

DRUGS (1)
  1. EXFORGE HCT [Suspect]

REACTIONS (3)
  - NAUSEA [None]
  - ORTHOSTATIC HYPERTENSION [None]
  - VENOUS INSUFFICIENCY [None]
